FAERS Safety Report 23226121 (Version 1)
Quarter: 2023Q4

REPORT INFORMATION
  Report Type: Spontaneous
  Country: US (occurrence: US)
  Receive Date: 20231124
  Receipt Date: 20231124
  Transmission Date: 20240109
  Serious: Yes (Hospitalization)
  Sender: FDA-Public Use
  Company Number: US-009507513-2311USA008776

PATIENT
  Age: 30 Year
  Sex: Female
  Weight: 55.2 kg

DRUGS (29)
  1. KEYTRUDA [Suspect]
     Active Substance: PEMBROLIZUMAB
     Indication: Oesophageal adenocarcinoma
     Dosage: 400 MILLIGRAM, ONCE
     Route: 042
     Dates: start: 20220718, end: 20220718
  2. KEYTRUDA [Suspect]
     Active Substance: PEMBROLIZUMAB
     Indication: Adenocarcinoma gastric
  3. ONDANSETRON [Concomitant]
     Active Substance: ONDANSETRON
     Indication: Nausea
     Dosage: 4 MG DAILY, PRN
     Route: 048
     Dates: start: 20220323
  4. BUPRENORPHINE [Concomitant]
     Active Substance: BUPRENORPHINE
     Indication: Abdominal pain
     Dosage: 10 MILLIGRAM, QW, FORMULATION PATCH
     Route: 061
     Dates: start: 20220408
  5. BUPRENORPHINE [Concomitant]
     Active Substance: BUPRENORPHINE
     Indication: Back pain
  6. SIMETHICONE (DIMETHICONE) [Concomitant]
     Active Substance: DIMETHICONE
     Indication: Gastrooesophageal reflux disease
     Dosage: 30 ML DAILY, PRN
     Route: 048
     Dates: start: 20220408
  7. VITAMINS [Concomitant]
     Active Substance: VITAMINS
     Indication: Routine health maintenance
     Dosage: 1 TABLET, QD, STRENGTH: 1 TABLET
     Route: 048
     Dates: start: 20220408
  8. IBUPROFEN [Concomitant]
     Active Substance: IBUPROFEN
     Indication: Abdominal pain
     Dosage: 200 MG DAILY, PRN
     Route: 048
     Dates: start: 20220408
  9. IBUPROFEN [Concomitant]
     Active Substance: IBUPROFEN
     Indication: Back pain
  10. DOCUSATE SODIUM [Concomitant]
     Active Substance: DOCUSATE SODIUM
     Indication: Constipation
     Dosage: 100 MG DAILY, PRN
     Route: 048
     Dates: start: 20220411
  11. LACTULOSE [Concomitant]
     Active Substance: LACTULOSE
     Indication: Constipation
     Dosage: 20 MG DAILY, PRN
     Route: 048
     Dates: start: 20220422
  12. ONDANSETRON [Concomitant]
     Active Substance: ONDANSETRON
     Indication: Nausea
     Dosage: 8 MG DAILY, PRN
     Route: 048
     Dates: start: 20220426
  13. ACETAMINOPHEN\HYDROCODONE BITARTRATE [Concomitant]
     Active Substance: ACETAMINOPHEN\HYDROCODONE BITARTRATE
     Indication: Abdominal pain
     Dosage: 1 TABLET DAILY, PRN, STREGNTH 1 DOSAGE FORM
     Route: 048
     Dates: start: 20220502
  14. ACETAMINOPHEN\HYDROCODONE BITARTRATE [Concomitant]
     Active Substance: ACETAMINOPHEN\HYDROCODONE BITARTRATE
     Indication: Back pain
  15. PROCHLORPERAZINE [Concomitant]
     Active Substance: PROCHLORPERAZINE
     Indication: Nausea
     Dosage: 10 MG DAILY, PRN
     Route: 048
     Dates: start: 20220518
  16. OLANZAPINE [Concomitant]
     Active Substance: OLANZAPINE
     Indication: Nausea
     Dosage: 5 MILLIGRAM, QD
     Route: 048
     Dates: start: 20220601
  17. LORAZEPAM [Concomitant]
     Active Substance: LORAZEPAM
     Indication: Nausea
     Dosage: 0.5 MG DAILY, PRN
     Route: 048
     Dates: start: 20220603
  18. ALUMINIUM HYDROXIDE;DIPHENHYDRAMINE;MAGNESIUM HYDROXIDE;NYSTATIN [Concomitant]
     Indication: Oral pain
     Dosage: 10 ML DAILY
     Route: 048
     Dates: start: 20220609
  19. LABETALOL [Concomitant]
     Active Substance: LABETALOL\LABETALOL HYDROCHLORIDE
     Indication: Hypertension
     Dosage: 300 MILLIGRAM, QD
     Route: 048
     Dates: start: 20220615
  20. HEPARIN [Concomitant]
     Active Substance: HEPARIN SODIUM
     Indication: Supportive care
     Dosage: 500U, ONCE
     Route: 042
     Dates: start: 20220706, end: 20220706
  21. DEXAMETHASONE [Concomitant]
     Active Substance: DEXAMETHASONE
     Indication: Nausea
     Dosage: 4 MILLIGRAM, ONCE
     Route: 042
     Dates: start: 20220706, end: 20220706
  22. SODIUM CHLORIDE [Concomitant]
     Active Substance: SODIUM CHLORIDE
     Indication: Supportive care
     Dosage: 20 MILLILITER, ONCE
     Route: 042
     Dates: start: 20220706, end: 20220706
  23. DIAZEPAM [Concomitant]
     Active Substance: DIAZEPAM
     Indication: Anxiety
     Dosage: 2.5 MILLIGRAM, ONCE
     Route: 042
     Dates: start: 20220706, end: 20220706
  24. SODIUM CHLORIDE [Concomitant]
     Active Substance: SODIUM CHLORIDE
     Indication: Nausea
     Dosage: 1000 MILLILITER, ONCE
     Route: 042
     Dates: start: 20220706, end: 20220706
  25. PALONOSETRON HYDROCHLORIDE [Concomitant]
     Active Substance: PALONOSETRON HYDROCHLORIDE
     Indication: Nausea
     Dosage: 0.25 MILLIGRAM, ONCE
     Route: 042
     Dates: start: 20220706, end: 20220706
  26. OXALIPLATIN [Concomitant]
     Active Substance: OXALIPLATIN
     Indication: Malignant neoplasm progression
     Dosage: 135 MILLIGRAM, ONCE
     Route: 042
     Dates: start: 20220718, end: 20220718
  27. LEUCOVORIN CALCIUM [Concomitant]
     Active Substance: LEUCOVORIN CALCIUM
     Indication: Malignant neoplasm progression
     Dosage: 628 MILLIGRAM, ONCE
     Route: 042
     Dates: start: 20220718, end: 20220718
  28. TRASTUZUMAB [Concomitant]
     Active Substance: TRASTUZUMAB
     Indication: Malignant neoplasm progression
     Dosage: 331 MILLIGRAM, ONCE
     Route: 042
     Dates: start: 20220718, end: 20220718
  29. FLUOROURACIL [Concomitant]
     Active Substance: FLUOROURACIL
     Indication: Malignant neoplasm progression
     Dosage: 628 MILLIGRAM, ONCE
     Route: 042
     Dates: start: 20220718, end: 20220718

REACTIONS (1)
  - Vomiting [Unknown]

NARRATIVE: CASE EVENT DATE: 20220718
